FAERS Safety Report 10345179 (Version 5)
Quarter: 2016Q3

REPORT INFORMATION
  Report Type: Spontaneous
  Country: US (occurrence: US)
  Receive Date: 20140728
  Receipt Date: 20160725
  Transmission Date: 20161109
  Serious: Yes (Hospitalization, Other)
  Sender: FDA-Public Use
  Company Number: US-009507513-0907USA05807

PATIENT
  Sex: Female
  Weight: 48.53 kg

DRUGS (3)
  1. ALENDRONATE SODIUM. [Suspect]
     Active Substance: ALENDRONATE SODIUM
     Indication: PRODUCT USED FOR UNKNOWN INDICATION
     Dosage: 70 MG, UNKNOWN
     Route: 048
     Dates: start: 20080303, end: 20090224
  2. ALENDRONATE SODIUM. [Suspect]
     Active Substance: ALENDRONATE SODIUM
     Indication: PRODUCT USED FOR UNKNOWN INDICATION
     Dosage: 70 MG, UNKNOWN
     Route: 048
     Dates: start: 20081124, end: 20090224
  3. FOSAMAX [Suspect]
     Active Substance: ALENDRONATE SODIUM
     Indication: OSTEOPOROSIS
     Dosage: 70 MG, QW
     Route: 048
     Dates: start: 20010814, end: 20090817

REACTIONS (23)
  - Adverse drug reaction [Unknown]
  - Tonsillar disorder [Unknown]
  - Tachycardia [Unknown]
  - Blood oestrogen abnormal [Unknown]
  - Lumbar radiculopathy [Unknown]
  - Procedural hypotension [Unknown]
  - Stress fracture [Recovering/Resolving]
  - Anxiety [Not Recovered/Not Resolved]
  - Menstrual disorder [Unknown]
  - Panic attack [Not Recovered/Not Resolved]
  - Uterine cervix stenosis [Unknown]
  - Lumbar spinal stenosis [Not Recovered/Not Resolved]
  - Sleep disorder [Unknown]
  - Spinal osteoarthritis [Not Recovered/Not Resolved]
  - Stress fracture [Unknown]
  - Arthropathy [Unknown]
  - Femur fracture [Recovering/Resolving]
  - Anaemia [Unknown]
  - Hypovolaemia [Unknown]
  - Bursitis [Unknown]
  - Fall [Unknown]
  - Post procedural haemorrhage [Unknown]
  - Foot fracture [Unknown]

NARRATIVE: CASE EVENT DATE: 20021009
